FAERS Safety Report 5609387-5 (Version None)
Quarter: 2008Q1

REPORT INFORMATION
  Report Type: 
  Country: None (occurrence: None)
  Receive Date: 20080131
  Receipt Date: 20080130
  Transmission Date: 20080703
  Serious: Yes (Death, Hospitalization)
  Sender: FDA-Public Use
  Company Number: US-BRISTOL-MYERS SQUIBB COMPANY-12755260

PATIENT
  Age: 34 Year
  Sex: Female
  Weight: 168 kg

DRUGS (15)
  1. DEFINITY [Suspect]
     Indication: DYSPNOEA
     Dosage: DURATION OF THERAPY: ^MINUTES^
     Route: 042
     Dates: start: 20041011
  2. DEFINITY [Suspect]
     Indication: SHOCK
     Dosage: DURATION OF THERAPY: ^MINUTES^
     Route: 042
     Dates: start: 20041011
  3. DOPAMINE HCL [Concomitant]
  4. AZITHROMYCIN [Concomitant]
     Route: 042
     Dates: start: 20041011, end: 20041011
  5. CEFTRIAXONE SODIUM [Concomitant]
     Route: 042
     Dates: start: 20041011, end: 20041011
  6. FAMOTIDINE INJ 10 MG/ML [Concomitant]
     Route: 042
     Dates: start: 20041011, end: 20041011
  7. FERROUS SULFATE [Concomitant]
     Route: 048
     Dates: start: 20041011, end: 20041011
  8. HEPARIN [Concomitant]
     Dosage: DOSE VALUE:  5000 U/ML VIAL 1 ML. 5000 UNITS TID.
     Route: 058
     Dates: start: 20041011, end: 20041011
  9. IBUPROFEN [Concomitant]
     Route: 048
     Dates: start: 20041011, end: 20041011
  10. LIDOCAINE AND EPINEPHRINE [Concomitant]
     Route: 061
     Dates: start: 20041011, end: 20041011
  11. NOREPINEPHRINE [Concomitant]
     Route: 042
     Dates: start: 20041011, end: 20041011
  12. SENOKOT [Concomitant]
     Route: 048
     Dates: start: 20041011, end: 20041011
  13. VECURONIUM BROMIDE [Concomitant]
     Route: 042
     Dates: start: 20041011, end: 20041011
  14. VANCOMYCIN [Concomitant]
     Route: 042
     Dates: start: 20041011, end: 20041011
  15. PIPERACILLIN AND TAZOBACTAM [Concomitant]
     Route: 042
     Dates: start: 20041011, end: 20041011

REACTIONS (1)
  - CARDIAC ARREST [None]
